FAERS Safety Report 13426357 (Version 1)
Quarter: 2017Q2

REPORT INFORMATION
  Report Type: Spontaneous
  Country: US (occurrence: US)
  Receive Date: 20170411
  Receipt Date: 20170411
  Transmission Date: 20170830
  Serious: No
  Sender: FDA-Public Use
  Company Number: US-LUPIN PHARMACEUTICALS INC.-2017-00115

PATIENT
  Age: 21 Year
  Sex: Female

DRUGS (1)
  1. FALLBACK SOLO [Suspect]
     Active Substance: LEVONORGESTREL
     Indication: CONTRACEPTION
     Dosage: 1.5 MG,QD,
     Route: 048
     Dates: start: 20161222

REACTIONS (2)
  - No adverse event [Unknown]
  - Expired product administered [Unknown]

NARRATIVE: CASE EVENT DATE: 20161222
